FAERS Safety Report 6527286-1 (Version None)
Quarter: 2009Q4

REPORT INFORMATION
  Report Type: 
  Country: None (occurrence: None)
  Receive Date: 20091222
  Receipt Date: 20091002
  Transmission Date: 20100525
  Serious: No
  Sender: FDA-Public Use
  Company Number: ALL1-2009-03025

PATIENT
  Age: 8 Year
  Sex: Male
  Weight: 27.7 kg

DRUGS (3)
  1. VYVANSE [Suspect]
     Indication: ATTENTION DEFICIT/HYPERACTIVITY DISORDER
     Dosage: 30; 50 MG, 1X/DAY:QD, ORAL
     Route: 048
     Dates: start: 20080108, end: 20090301
  2. VYVANSE [Suspect]
     Indication: ATTENTION DEFICIT/HYPERACTIVITY DISORDER
     Dosage: 30; 50 MG, 1X/DAY:QD, ORAL
     Route: 048
     Dates: start: 20090930
  3. VITAMINS NOS [Concomitant]

REACTIONS (4)
  - AGITATION [None]
  - ANGER [None]
  - EMOTIONAL DISTRESS [None]
  - NEGATIVISM [None]
